FAERS Safety Report 9210307 (Version 2)
Quarter: 2013Q3

REPORT INFORMATION
  Report Type: Spontaneous
  Country: US (occurrence: US)
  Receive Date: 20130404
  Receipt Date: 20130710
  Transmission Date: 20140515
  Serious: No
  Sender: FDA-Public Use
  Company Number: US-009507513-1303USA011237

PATIENT
  Age: 51 Year
  Sex: Male
  Weight: 74.83 kg

DRUGS (2)
  1. CLARITIN [Suspect]
     Indication: RHINORRHOEA
     Dosage: 10 MG, QD
     Route: 048
     Dates: start: 20130315
  2. CLARITIN [Suspect]
     Indication: SNEEZING
     Dosage: 10 MG, PRN
     Route: 048
     Dates: start: 201301, end: 201303

REACTIONS (2)
  - Somnolence [Recovered/Resolved]
  - Drug ineffective [Unknown]
